FAERS Safety Report 5808607-1 (Version None)
Quarter: 2008Q3

REPORT INFORMATION
  Report Type: 
  Country: None (occurrence: None)
  Receive Date: 20080714
  Receipt Date: 20080703
  Transmission Date: 20090109
  Serious: Yes (Other)
  Sender: FDA-Public Use
  Company Number: DE-AMGEN-UK283693

PATIENT
  Sex: Male

DRUGS (4)
  1. PANITUMUMAB [Suspect]
     Indication: COLORECTAL CANCER
     Route: 042
     Dates: start: 20080305
  2. IRINOTECAN [Concomitant]
  3. FLUOROURACIL [Concomitant]
  4. LEUCOCIANIDOL [Concomitant]

REACTIONS (1)
  - SKIN FISSURES [None]
